FAERS Safety Report 8351428-9 (Version None)
Quarter: 2012Q2

REPORT INFORMATION
  Report Type: 
  Country: None (occurrence: None)
  Receive Date: 20120510
  Receipt Date: 20120509
  Transmission Date: 20120825
  Serious: Yes (Hospitalization)
  Sender: FDA-Public Use
  Company Number: IL-ROCHE-1054109

PATIENT
  Sex: Female
  Weight: 68 kg

DRUGS (12)
  1. ACTEMRA [Suspect]
     Indication: RHEUMATOID ARTHRITIS
     Route: 042
     Dates: start: 20050629
  2. ACTEMRA [Suspect]
     Route: 042
     Dates: start: 20120229
  3. ASPIRIN [Concomitant]
     Route: 048
  4. SIMVASTATIN [Concomitant]
     Route: 048
  5. OMEPRADEX [Concomitant]
  6. ACTEMRA [Suspect]
     Route: 042
     Dates: start: 20120104, end: 20120104
  7. ACTEMRA [Suspect]
     Route: 042
     Dates: start: 20120201, end: 20120201
  8. LOSARTAN POTASSIUM [Concomitant]
     Route: 048
  9. FOLIC ACID [Concomitant]
  10. ACTEMRA [Suspect]
     Route: 042
     Dates: start: 20111207, end: 20111207
  11. METHOTREXATE [Concomitant]
     Route: 048
  12. NIFEDIPINE [Concomitant]

REACTIONS (1)
  - ACUTE MYOCARDIAL INFARCTION [None]
